FAERS Safety Report 9190130 (Version 1)
Quarter: 2013Q1

REPORT INFORMATION
  Report Type: Spontaneous
  Country: US (occurrence: None)
  Receive Date: 20130325
  Receipt Date: 20130325
  Transmission Date: 20140127
  Serious: No
  Sender: FDA-Public Use
  Company Number: None

PATIENT
  Age: 85 Year
  Sex: Male
  Weight: 107.5 kg

DRUGS (1)
  1. SILDENAFIL CITRATE TAB 20MG [Suspect]
     Indication: PERICARDIAL EFFUSION
     Route: 048
     Dates: start: 20130212, end: 20130226

REACTIONS (3)
  - Diarrhoea [None]
  - Dizziness [None]
  - Headache [None]
